FAERS Safety Report 9032533 (Version 1)
Quarter: 2013Q1

REPORT INFORMATION
  Report Type: Spontaneous
  Country: US (occurrence: US)
  Receive Date: 20130125
  Receipt Date: 20130125
  Transmission Date: 20140127
  Serious: Yes (Hospitalization)
  Sender: FDA-Public Use
  Company Number: US-ELI_LILLY_AND_COMPANY-US201301005561

PATIENT
  Age: 71 Year
  Sex: Female

DRUGS (11)
  1. FORTEO [Suspect]
     Indication: OSTEOPOROSIS
     Dosage: 20 UG, QD
     Dates: start: 201103
  2. METOPROLOL [Concomitant]
     Dosage: 25 MG, BID
  3. LISINOPRIL [Concomitant]
     Dosage: 5 MG, QD
  4. LEVOTHYROXINE [Concomitant]
     Dosage: 125 MG, QD
  5. SIMVASTATIN [Concomitant]
     Dosage: 40 MG, QD
  6. GLUCOPHAGE [Concomitant]
     Dosage: 1000 MG, BID
  7. LANTUS [Concomitant]
     Dosage: 30 U, QD
  8. VITAMIN D [Concomitant]
     Dosage: 50000 U, MONTHLY (1/M)
  9. NEURONTIN [Concomitant]
     Dosage: 600 MG, TID
  10. ASPIRIN [Concomitant]
     Dosage: 81 MG, QD
  11. PANTOPRAZOLE [Concomitant]
     Dosage: 40 MG, PRN

REACTIONS (3)
  - Choking [Unknown]
  - Loss of consciousness [Unknown]
  - Confusional state [Unknown]
